FAERS Safety Report 13585427 (Version 1)
Quarter: 2017Q2

REPORT INFORMATION
  Report Type: Spontaneous
  Country: US (occurrence: US)
  Receive Date: 20170526
  Receipt Date: 20170526
  Transmission Date: 20170830
  Serious: No
  Sender: FDA-Public Use
  Company Number: US-GLAXOSMITHKLINE-US2017078798

PATIENT
  Sex: Male

DRUGS (2)
  1. VENTOLIN HFA [Suspect]
     Active Substance: ALBUTEROL SULFATE
     Indication: WHEEZING
     Dosage: 2 PUFF(S), PRN
     Route: 055
     Dates: start: 2009
  2. XANAX [Concomitant]
     Active Substance: ALPRAZOLAM

REACTIONS (4)
  - Product cleaning inadequate [Unknown]
  - Throat irritation [Recovered/Resolved]
  - Wrong technique in device usage process [Unknown]
  - Product use in unapproved indication [Unknown]
